FAERS Safety Report 6771987-7 (Version None)
Quarter: 2010Q2

REPORT INFORMATION
  Report Type: 
  Country: None (occurrence: None)
  Receive Date: 20100616
  Receipt Date: 20100415
  Transmission Date: 20101027
  Serious: No
  Sender: FDA-Public Use
  Company Number: US-ASTRAZENECA-2010SE16866

PATIENT
  Age: 18919 Day
  Sex: Female
  Weight: 62.6 kg

DRUGS (1)
  1. RHINOCORT [Suspect]
     Indication: RHINORRHOEA
     Dosage: 2 SPRAYS DAILY
     Route: 045
     Dates: start: 20100415

REACTIONS (3)
  - DRUG INEFFECTIVE [None]
  - RHINORRHOEA [None]
  - THIRST [None]
